FAERS Safety Report 18423890 (Version 1)
Quarter: 2020Q4

REPORT INFORMATION
  Report Type: Other
  Country: CA (occurrence: CA)
  Receive Date: 20201025
  Receipt Date: 20201025
  Transmission Date: 20210114
  Serious: Yes (Hospitalization)
  Sender: FDA-Public Use
  Company Number: CA-CELLTRION INC.-2020CA029187

PATIENT

DRUGS (16)
  1. DIPHENHYDRAMINE. [Suspect]
     Active Substance: DIPHENHYDRAMINE
     Indication: PREMEDICATION
     Dosage: 50 MG
     Route: 042
  2. FOLIC ACID. [Concomitant]
     Active Substance: FOLIC ACID
     Route: 065
  3. IBUPROFEN. [Concomitant]
     Active Substance: IBUPROFEN
     Route: 065
  4. RITUXIMAB (UNKNOWN) [Suspect]
     Active Substance: RITUXIMAB
     Indication: RHEUMATOID ARTHRITIS
     Dosage: 1000 MG
     Route: 042
  5. CAFFEINE CITRATE;CODEINE PHOSPHATE;PARACETAMOL [Concomitant]
     Active Substance: ACETAMINOPHEN\CAFFEINE\CODEINE PHOSPHATE
     Indication: PREMEDICATION
     Dosage: 650 MG
     Route: 048
  6. ACTEMRA [Suspect]
     Active Substance: TOCILIZUMAB
     Indication: RHEUMATOID ARTHRITIS
     Dosage: 400 MG, 1 EVERY 1 MONTH
     Route: 042
  7. METHOTREXATE. [Suspect]
     Active Substance: METHOTREXATE
     Indication: PRODUCT USED FOR UNKNOWN INDICATION
     Route: 058
  8. DESOGESTREL;ETHINYLESTRADIOL [Concomitant]
     Active Substance: DESOGESTREL\ETHINYL ESTRADIOL
     Route: 065
  9. HYDROCORTISONE. [Concomitant]
     Active Substance: HYDROCORTISONE
     Dosage: 100 MG
     Route: 042
  10. METHYLPREDNISOLONE SODIUM SUCCINATE. [Concomitant]
     Active Substance: METHYLPREDNISOLONE SODIUM SUCCINATE
     Dosage: 125 MG
     Route: 042
  11. PREDNISONE. [Concomitant]
     Active Substance: PREDNISONE
  12. ATIVAN [Concomitant]
     Active Substance: LORAZEPAM
     Route: 065
  13. PERCOCET [Concomitant]
     Active Substance: ACETAMINOPHEN\OXYCODONE HYDROCHLORIDE
     Route: 065
  14. PLAQUENIL [Concomitant]
     Active Substance: HYDROXYCHLOROQUINE SULFATE
  15. SOLU-MEDROL [Concomitant]
     Active Substance: METHYLPREDNISOLONE SODIUM SUCCINATE
     Indication: PREMEDICATION
     Dosage: 100 MG
     Route: 042
  16. CELEBREX [Concomitant]
     Active Substance: CELECOXIB
     Route: 065

REACTIONS (31)
  - Dry skin [Not Recovered/Not Resolved]
  - Abdominal pain lower [Not Recovered/Not Resolved]
  - Alopecia [Not Recovered/Not Resolved]
  - Cough [Not Recovered/Not Resolved]
  - Abdominal distension [Not Recovered/Not Resolved]
  - Cholelithiasis [Not Recovered/Not Resolved]
  - Gallbladder disorder [Not Recovered/Not Resolved]
  - Hypotension [Not Recovered/Not Resolved]
  - Arthritis [Not Recovered/Not Resolved]
  - Pancreatitis acute [Not Recovered/Not Resolved]
  - Arthralgia [Not Recovered/Not Resolved]
  - Joint effusion [Not Recovered/Not Resolved]
  - Productive cough [Not Recovered/Not Resolved]
  - Rheumatoid arthritis [Not Recovered/Not Resolved]
  - Tooth fracture [Not Recovered/Not Resolved]
  - Weight decreased [Not Recovered/Not Resolved]
  - Weight increased [Not Recovered/Not Resolved]
  - Oxygen saturation decreased [Not Recovered/Not Resolved]
  - Infusion related reaction [Not Recovered/Not Resolved]
  - Disability assessment scale score increased [Not Recovered/Not Resolved]
  - Somnolence [Not Recovered/Not Resolved]
  - Urinary tract infection [Not Recovered/Not Resolved]
  - Drug ineffective [Not Recovered/Not Resolved]
  - Dysphagia [Not Recovered/Not Resolved]
  - Lower respiratory tract infection [Not Recovered/Not Resolved]
  - Pain [Not Recovered/Not Resolved]
  - Pruritus [Not Recovered/Not Resolved]
  - Cholecystitis [Not Recovered/Not Resolved]
  - Haemoglobin decreased [Not Recovered/Not Resolved]
  - Oropharyngeal pain [Not Recovered/Not Resolved]
  - Throat irritation [Not Recovered/Not Resolved]
